FAERS Safety Report 16945705 (Version 1)
Quarter: 2019Q4

REPORT INFORMATION
  Report Type: Spontaneous
  Country: US (occurrence: US)
  Receive Date: 20191021
  Receipt Date: 20191021
  Transmission Date: 20200122
  Serious: No
  Sender: FDA-Public Use
  Company Number: None

PATIENT
  Age: 72 Year

DRUGS (2)
  1. NORTHERA [Suspect]
     Active Substance: DROXIDOPA
  2. STRATTERA [Suspect]
     Active Substance: ATOMOXETINE HYDROCHLORIDE

REACTIONS (4)
  - Headache [None]
  - Depression [None]
  - Crying [None]
  - Blood pressure increased [None]
